FAERS Safety Report 5797316-3 (Version None)
Quarter: 2008Q3

REPORT INFORMATION
  Report Type: 
  Country: None (occurrence: None)
  Receive Date: 20080701
  Receipt Date: 20080623
  Transmission Date: 20090109
  Serious: Yes (Other)
  Sender: FDA-Public Use
  Company Number: BR-PFIZER INC-2008053551

PATIENT
  Sex: Female
  Weight: 45 kg

DRUGS (2)
  1. PROVERA [Suspect]
     Indication: AMENORRHOEA
     Route: 048
  2. CARBAMAZEPINE [Concomitant]
     Indication: EPILEPSY
     Route: 065

REACTIONS (3)
  - EPILEPSY [None]
  - MEMORY IMPAIRMENT [None]
  - WEIGHT DECREASED [None]
